FAERS Safety Report 5877163-4 (Version None)
Quarter: 2008Q3

REPORT INFORMATION
  Report Type: 
  Country: None (occurrence: None)
  Receive Date: 20080910
  Receipt Date: 20080829
  Transmission Date: 20090109
  Serious: Yes (Other)
  Sender: FDA-Public Use
  Company Number: BR-PFIZER INC-2007097005

PATIENT
  Sex: Female

DRUGS (8)
  1. DETRUSITOL LA [Suspect]
     Indication: URINARY INCONTINENCE
     Route: 048
     Dates: start: 20070401, end: 20070501
  2. XALATAN [Suspect]
     Indication: GLAUCOMA
     Route: 047
  3. XALCOM [Suspect]
     Indication: GLAUCOMA
     Dosage: TEXT:3.0MCG/300MCG
     Route: 047
     Dates: start: 20071101
  4. EUTHYROX [Concomitant]
     Indication: HYPOTHYROIDISM
     Dosage: DAILY DOSE:50MCG-FREQ:DAILY
     Route: 048
  5. OMEPRAZOLE [Concomitant]
  6. FLUOXETINE [Concomitant]
     Indication: DEPRESSION
  7. ALL OTHER THERAPEUTIC PRODUCTS [Concomitant]
  8. ROHYPNOL [Concomitant]
     Indication: SLEEP DISORDER
     Route: 048

REACTIONS (1)
  - INTRAOCULAR PRESSURE INCREASED [None]
